FAERS Safety Report 4293054-7 (Version None)
Quarter: 2004Q1

REPORT INFORMATION
  Report Type: 
  Country: None (occurrence: None)
  Receive Date: 20040210
  Receipt Date: 20040203
  Transmission Date: 20041129
  Serious: Yes (Life-Threatening)
  Sender: FDA-Public Use
  Company Number: J081-002-001565

PATIENT
  Age: 75 Year
  Sex: Male

DRUGS (12)
  1. ARICEPT [Suspect]
     Indication: CEREBRAL INFARCTION
     Dosage: 5 MG, 1 IN 1 D, ORAL
     Route: 048
     Dates: start: 20030601, end: 20040115
  2. KETAS (IBUDILAST) [Concomitant]
  3. BUFFERIN [Concomitant]
  4. TICLOPIDINE HCL [Concomitant]
  5. PLETAL [Concomitant]
  6. PZC (PERPHENAZINE MALEATE) [Concomitant]
  7. NORVASC [Concomitant]
  8. LISINOPRIL [Concomitant]
  9. NU LOTAN (LOSARTAN POTASSIUM) [Concomitant]
  10. LIPITOR [Concomitant]
  11. CEPHADOL (DIFENIDOL HYDROCHLORIDE) [Concomitant]
  12. NAUZELIN (DOMPERIDONE) [Concomitant]

REACTIONS (2)
  - ARRHYTHMIA [None]
  - ATRIOVENTRICULAR BLOCK SECOND DEGREE [None]
